FAERS Safety Report 18805960 (Version 1)
Quarter: 2021Q1

REPORT INFORMATION
  Report Type: Other
  Country: ID (occurrence: ID)
  Receive Date: 20210129
  Receipt Date: 20210129
  Transmission Date: 20210419
  Serious: Yes (Life-Threatening, Hospitalization, Other)
  Sender: FDA-Public Use
  Company Number: ID-FDC LIMITED-2106011

PATIENT
  Age: 64 Year
  Sex: Female

DRUGS (3)
  1. CHLOROQUINE PHOSPHATE. [Suspect]
     Active Substance: CHLOROQUINE PHOSPHATE
     Route: 048
  2. MEROPENEM. [Suspect]
     Active Substance: MEROPENEM
     Route: 042
  3. CIPROFLOXACIN. [Suspect]
     Active Substance: CIPROFLOXACIN
     Indication: THROMBOSIS PROPHYLAXIS
     Route: 042

REACTIONS (3)
  - Off label use [Unknown]
  - Ventricular tachycardia [Unknown]
  - Torsade de pointes [Unknown]
